FAERS Safety Report 4446560-6 (Version None)
Quarter: 2004Q3

REPORT INFORMATION
  Report Type: 
  Country: None (occurrence: None)
  Receive Date: 20040902
  Receipt Date: 20040811
  Transmission Date: 20050211
  Serious: Yes (Other)
  Sender: FDA-Public Use
  Company Number: EWC040840148

PATIENT
  Age: 67 Year
  Sex: Male

DRUGS (3)
  1. PERGOLIDE MESYLATE [Suspect]
     Dosage: 1.25 MG/3 DAY
     Dates: start: 19930801, end: 19940901
  2. PROLOPA [Concomitant]
  3. MYSOLINE [Concomitant]

REACTIONS (4)
  - AKINESIA [None]
  - AORTIC VALVE INCOMPETENCE [None]
  - DEMENTIA [None]
  - MITRAL VALVE INCOMPETENCE [None]
